FAERS Safety Report 16354383 (Version 1)
Quarter: 2019Q2

REPORT INFORMATION
  Report Type: Spontaneous
  Country: IT (occurrence: IT)
  Receive Date: 20190524
  Receipt Date: 20190524
  Transmission Date: 20190711
  Serious: Yes (Other)
  Sender: FDA-Public Use
  Company Number: IT-TEVA-2019-IT-1053658

PATIENT
  Age: 17 Year
  Sex: Male

DRUGS (3)
  1. PARACODINA 10,25 MG/ML GOCCE ORALI, SOLUZIONE [Suspect]
     Active Substance: DIHYDROCODEINE
     Indication: OROPHARYNGEAL PAIN
     Route: 048
     Dates: start: 20190407, end: 20190407
  2. RANITIDINE. [Suspect]
     Active Substance: RANITIDINE
     Route: 048
     Dates: start: 20190407, end: 20190407
  3. URBASON SOLUBILE [Concomitant]
     Active Substance: METHYLPREDNISOLONE SODIUM SUCCINATE
     Route: 042
     Dates: start: 20190407

REACTIONS (1)
  - Throat tightness [Recovered/Resolved]

NARRATIVE: CASE EVENT DATE: 20190407
